FAERS Safety Report 6524916-5 (Version None)
Quarter: 2010Q1

REPORT INFORMATION
  Report Type: 
  Country: None (occurrence: None)
  Receive Date: 20100104
  Receipt Date: 20091221
  Transmission Date: 20100710
  Serious: No
  Sender: FDA-Public Use
  Company Number: JP-PFIZER INC-2009305390

PATIENT
  Age: 42 Year
  Sex: Female

DRUGS (1)
  1. ZOLOFT [Suspect]
     Dosage: 75 MG, 1X/DAY
     Route: 048

REACTIONS (3)
  - CHROMATOPSIA [None]
  - NEURALGIA [None]
  - PANIC REACTION [None]
